FAERS Safety Report 13717091 (Version 2)
Quarter: 2017Q3

REPORT INFORMATION
  Report Type: Spontaneous
  Country: FR (occurrence: FR)
  Receive Date: 20170705
  Receipt Date: 20170817
  Transmission Date: 20171127
  Serious: Yes (Hospitalization, Other)
  Sender: FDA-Public Use
  Company Number: FR-IPSEN BIOPHARMACEUTICALS, INC.-2017-06284

PATIENT
  Age: 39 Year
  Sex: Female

DRUGS (5)
  1. DYSPORT [Suspect]
     Active Substance: ABOBOTULINUMTOXINA
     Indication: PARAPARESIS
  2. DYSPORT [Suspect]
     Active Substance: ABOBOTULINUMTOXINA
     Indication: PARAPARESIS
     Dosage: 1200 UNITS
     Route: 030
     Dates: start: 20170517, end: 20170517
  3. DYSPORT [Suspect]
     Active Substance: ABOBOTULINUMTOXINA
     Indication: PARAPARESIS
  4. BACLOFEN. [Concomitant]
     Active Substance: BACLOFEN
     Dates: start: 201703
  5. BACLOFEN. [Concomitant]
     Active Substance: BACLOFEN
     Dates: start: 2017

REACTIONS (6)
  - Asthenia [Unknown]
  - Depression [Unknown]
  - Oedema peripheral [Unknown]
  - Neuromuscular toxicity [Recovering/Resolving]
  - Urinary incontinence [Unknown]
  - Limb discomfort [Unknown]

NARRATIVE: CASE EVENT DATE: 2017
